FAERS Safety Report 16340058 (Version 4)
Quarter: 2019Q4

REPORT INFORMATION
  Report Type: Spontaneous
  Country: AU (occurrence: AU)
  Receive Date: 20190521
  Receipt Date: 20191014
  Transmission Date: 20200122
  Serious: Yes (Hospitalization, Other)
  Sender: FDA-Public Use
  Company Number: AU-BEH-2019102402

PATIENT
  Age: 52 Year
  Sex: Male
  Weight: 81 kg

DRUGS (3)
  1. PRIVIGEN [Suspect]
     Active Substance: HUMAN IMMUNOGLOBULIN G
     Dosage: 20 GRAM
     Route: 065
     Dates: start: 20190408
  2. PRIVIGEN [Suspect]
     Active Substance: HUMAN IMMUNOGLOBULIN G
     Indication: CHRONIC INFLAMMATORY DEMYELINATING POLYRADICULONEUROPATHY
     Dosage: 160 GRAM IN 5 DIVISIONS
     Route: 065
     Dates: start: 20190408
  3. PRIVIGEN [Suspect]
     Active Substance: HUMAN IMMUNOGLOBULIN G
     Dosage: 10 GRAM
     Route: 065
     Dates: start: 20190408

REACTIONS (3)
  - Meningitis aseptic [Recovering/Resolving]
  - Muscular weakness [Recovering/Resolving]
  - Headache [Recovering/Resolving]
